FAERS Safety Report 25816744 (Version 1)
Quarter: 2025Q3

REPORT INFORMATION
  Report Type: Spontaneous
  Country: US (occurrence: US)
  Receive Date: 20250918
  Receipt Date: 20250918
  Transmission Date: 20251021
  Serious: No
  Sender: ZYDUS PHARM
  Company Number: US-CADILA HEALTHCARE LIMITED-US-ZYDUS-052550

PATIENT

DRUGS (2)
  1. DILTIAZEM HYDROCHLORIDE [Suspect]
     Active Substance: DILTIAZEM HYDROCHLORIDE
     Indication: Hypertension
     Route: 048
  2. ALBUTEROL [Concomitant]
     Active Substance: ALBUTEROL
     Indication: Product used for unknown indication
     Route: 065

REACTIONS (3)
  - Chest pain [Recovered/Resolved]
  - Pain in jaw [Recovered/Resolved]
  - Drug ineffective [Recovered/Resolved]

NARRATIVE: CASE EVENT DATE: 20200609
